FAERS Safety Report 10414163 (Version 1)
Quarter: 2014Q3

REPORT INFORMATION
  Report Type: Spontaneous
  Country: DE (occurrence: None)
  Receive Date: 20140826
  Receipt Date: 20140826
  Transmission Date: 20150326
  Serious: Yes (Life-Threatening)
  Sender: FDA-Public Use
  Company Number: 7314478

PATIENT
  Age: 35 Year
  Sex: Female

DRUGS (1)
  1. EUTHYROX 25 MCG (LEVOTHYROXINE SODIUM) (LEVOTHYROXINE SODIUM) [Suspect]
     Active Substance: LEVOTHYROXINE SODIUM
     Indication: HYPOTHYROIDISM
     Route: 048
     Dates: start: 201207

REACTIONS (2)
  - Hypoglycaemia [None]
  - Weight increased [None]

NARRATIVE: CASE EVENT DATE: 2013
